FAERS Safety Report 5107314-0 (Version None)
Quarter: 2006Q3

REPORT INFORMATION
  Report Type: 
  Country: None (occurrence: None)
  Receive Date: 20060912
  Receipt Date: 20060831
  Transmission Date: 20061208
  Serious: Yes (Disabling)
  Sender: FDA-Public Use
  Company Number: 200610257BBE

PATIENT
  Sex: Male
  Weight: 99.7913 kg

DRUGS (16)
  1. GAMUNEX [Suspect]
     Indication: CHRONIC INFLAMMATORY DEMYELINATING POLYRADICULONEUROPATHY
     Dosage: Q2WK, INTRAVENOUS
     Route: 042
     Dates: start: 20060826
  2. GAMUNEX [Suspect]
     Indication: CHRONIC INFLAMMATORY DEMYELINATING POLYRADICULONEUROPATHY
     Dosage: Q2WK, INTRAVENOUS
     Route: 042
     Dates: start: 20060827
  3. GAMUNEX [Suspect]
     Indication: CHRONIC INFLAMMATORY DEMYELINATING POLYRADICULONEUROPATHY
     Dosage: Q2WK, INTRAVENOUS
     Route: 042
     Dates: start: 20060828
  4. AZOPT [Concomitant]
  5. XALATAN [Concomitant]
  6. ZOCOR [Concomitant]
  7. POTASSIUM CHLORIDE [Concomitant]
  8. ZOLOFT [Concomitant]
  9. ALLEGRA-D 12 HOUR [Concomitant]
  10. NORVASC [Concomitant]
  11. HYDROCHLOROTHIAZIDE [Concomitant]
  12. VITAMIN B-12 [Concomitant]
  13. ZANTAC [Concomitant]
  14. FOLIC ACID [Concomitant]
  15. SAW PALMETTO [Concomitant]
  16. SINGULAIR [Concomitant]

REACTIONS (2)
  - DEAFNESS [None]
  - INFUSION RELATED REACTION [None]
